FAERS Safety Report 21411019 (Version 1)
Quarter: 2022Q4

REPORT INFORMATION
  Report Type: Report from Study
  Country: PL (occurrence: PL)
  Receive Date: 20221005
  Receipt Date: 20221005
  Transmission Date: 20230113
  Serious: Yes (Death)
  Sender: FDA-Public Use
  Company Number: PL-Merck Healthcare KGaA-9353766

PATIENT
  Age: 54 Year
  Sex: Male
  Weight: 110 kg

DRUGS (6)
  1. IRINOTECAN HYDROCHLORIDE [Suspect]
     Active Substance: IRINOTECAN HYDROCHLORIDE
     Indication: Colorectal cancer metastatic
     Dosage: FREQ:14 D;
     Route: 042
     Dates: start: 20200925, end: 20210719
  2. FLUOROURACIL [Suspect]
     Active Substance: FLUOROURACIL
     Indication: Colorectal cancer metastatic
     Dosage: FREQ:14 D;
     Route: 042
     Dates: start: 20200926, end: 20210720
  3. CETUXIMAB [Suspect]
     Active Substance: CETUXIMAB
     Indication: Colorectal cancer metastatic
     Dosage: FREQ:2 WK;
     Route: 042
     Dates: start: 20210719, end: 20210719
  4. CETUXIMAB [Suspect]
     Active Substance: CETUXIMAB
     Dosage: FREQ:2 WK;
     Route: 042
     Dates: start: 20200925
  5. LEUCOVORIN [Suspect]
     Active Substance: LEUCOVORIN
     Indication: Colorectal cancer metastatic
     Dosage: FREQ:14 D;
     Dates: start: 20200926, end: 20210720
  6. LEUCOVORIN [Suspect]
     Active Substance: LEUCOVORIN
     Dosage: FREQ:14 D;
     Route: 042
     Dates: start: 20200926, end: 20210720

REACTIONS (1)
  - Death [Fatal]
